FAERS Safety Report 10405969 (Version 1)
Quarter: 2014Q3

REPORT INFORMATION
  Report Type: Report from Study
  Country: CO (occurrence: CO)
  Receive Date: 20140825
  Receipt Date: 20140825
  Transmission Date: 20150326
  Serious: Yes (Other)
  Sender: FDA-Public Use
  Company Number: CO-ABBVIE-14K-036-1274474-00

PATIENT
  Age: 56 Year
  Sex: Female
  Weight: 96 kg

DRUGS (2)
  1. HUMIRA [Suspect]
     Active Substance: ADALIMUMAB
     Indication: PSORIATIC ARTHROPATHY
     Route: 058
     Dates: start: 20120503, end: 20140618
  2. OXYGEN. [Concomitant]
     Active Substance: OXYGEN
     Indication: PRODUCT USED FOR UNKNOWN INDICATION

REACTIONS (9)
  - Myalgia [Unknown]
  - Paraesthesia [Unknown]
  - Vulvovaginal dryness [Unknown]
  - Dry mouth [Unknown]
  - Dry eye [Unknown]
  - Dry throat [Unknown]
  - Arthralgia [Unknown]
  - Nasal dryness [Unknown]
  - Weight increased [Unknown]

NARRATIVE: CASE EVENT DATE: 20140630
